FAERS Safety Report 17867001 (Version 2)
Quarter: 2020Q3

REPORT INFORMATION
  Report Type: Spontaneous
  Country: US (occurrence: US)
  Receive Date: 20200605
  Receipt Date: 20200704
  Transmission Date: 20201103
  Serious: No
  Sender: FDA-Public Use
  Company Number: US-TEVA-2020-US-1244680

PATIENT
  Age: 40 Year
  Sex: Female

DRUGS (2)
  1. ACTAVIS METOPROLOL SUCCINATE ER [Suspect]
     Active Substance: METOPROLOL SUCCINATE
     Route: 048
  2. ACTAVIS METOPROLOL SUCCINATE ER [Suspect]
     Active Substance: METOPROLOL SUCCINATE
     Route: 048

REACTIONS (6)
  - Dry mouth [Unknown]
  - Swollen tongue [Unknown]
  - Urticaria [Recovered/Resolved]
  - Glossodynia [Unknown]
  - Hypersensitivity [Recovered/Resolved]
  - Product quality issue [Unknown]

NARRATIVE: CASE EVENT DATE: 201904
